FAERS Safety Report 15322066 (Version 1)
Quarter: 2018Q3

REPORT INFORMATION
  Report Type: Spontaneous
  Country: CL (occurrence: CL)
  Receive Date: 20180827
  Receipt Date: 20180827
  Transmission Date: 20181010
  Serious: Yes (Other)
  Sender: FDA-Public Use
  Company Number: CL-PFIZER INC-2018337476

PATIENT
  Age: 29 Year
  Sex: Male

DRUGS (2)
  1. SUTENT [Suspect]
     Active Substance: SUNITINIB MALATE
     Dosage: UNK
     Route: 048
  2. MORPHINE HCL [Concomitant]
     Active Substance: MORPHINE HYDROCHLORIDE
     Dosage: UNK

REACTIONS (6)
  - Pyrexia [Unknown]
  - Nausea [Unknown]
  - Tremor [Unknown]
  - Osteonecrosis [Unknown]
  - Fatigue [Unknown]
  - Night sweats [Unknown]
